FAERS Safety Report 4628308-5 (Version None)
Quarter: 2005Q2

REPORT INFORMATION
  Report Type: 
  Country: None (occurrence: None)
  Receive Date: 20050401
  Receipt Date: 20050318
  Transmission Date: 20051028
  Serious: Yes (Hospitalization)
  Sender: FDA-Public Use
  Company Number: 0500011EN0020P

PATIENT
  Age: 11 Year
  Sex: Female
  Weight: 29 kg

DRUGS (5)
  1. ONCASPAR [Suspect]
     Indication: ACUTE LYMPHOCYTIC LEUKAEMIA
     Dosage: 1825 IU IM
     Route: 030
     Dates: start: 20021009, end: 20021009
  2. DIFLUCAN [Concomitant]
  3. ACYCLOVIR [Concomitant]
  4. DECADRON [Concomitant]
  5. VINCRISTINE [Concomitant]

REACTIONS (4)
  - ASTHENIA [None]
  - CEREBRAL INFARCTION [None]
  - HEMIPLEGIA [None]
  - PERONEAL NERVE PALSY [None]
